FAERS Safety Report 19316504 (Version 3)
Quarter: 2021Q2

REPORT INFORMATION
  Report Type: Report from Study
  Country: US (occurrence: US)
  Receive Date: 20210527
  Receipt Date: 20210616
  Transmission Date: 20210717
  Serious: Yes (Death, Other)
  Sender: FDA-Public Use
  Company Number: US-GILEAD-2021-0533100

PATIENT
  Age: 32 Year
  Sex: Female

DRUGS (16)
  1. TREPROSTINIL. [Concomitant]
     Active Substance: TREPROSTINIL
  2. ADEMPAS [Concomitant]
     Active Substance: RIOCIGUAT
  3. AMBRISENTAN [Suspect]
     Active Substance: AMBRISENTAN
     Dosage: 10 MG, QD
     Route: 048
  4. TAPAZOLE [Concomitant]
     Active Substance: METHIMAZOLE
  5. PROTONIX [OMEPRAZOLE] [Concomitant]
     Active Substance: OMEPRAZOLE
  6. AMBRISENTAN [Suspect]
     Active Substance: AMBRISENTAN
     Indication: PRODUCT USED FOR UNKNOWN INDICATION
     Dosage: 5 MG
     Route: 048
  7. REMODULIN [Concomitant]
     Active Substance: TREPROSTINIL
  8. TADALAFIL. [Concomitant]
     Active Substance: TADALAFIL
  9. MIRENA [Concomitant]
     Active Substance: LEVONORGESTREL
  10. LASIX [Concomitant]
     Active Substance: FUROSEMIDE
  11. SODIUM CHLORIDE. [Concomitant]
     Active Substance: SODIUM CHLORIDE
  12. PEPCID [Concomitant]
     Active Substance: FAMOTIDINE
  13. NEURONTIN [Concomitant]
     Active Substance: GABAPENTIN
  14. VENTOLIN HFA [Concomitant]
     Active Substance: ALBUTEROL SULFATE
  15. KLOR?CON [Concomitant]
     Active Substance: POTASSIUM CHLORIDE
  16. DEMADEX [Concomitant]
     Active Substance: TORSEMIDE

REACTIONS (3)
  - Ectopic pregnancy [Unknown]
  - Maternal exposure during pregnancy [Unknown]
  - Death [Fatal]
